FAERS Safety Report 6572644 (Version 3)
Quarter: 2015Q1

REPORT INFORMATION
  Report Type: Report from Study
  Country: US (occurrence: US)
  Receive Date: 20080222
  Receipt Date: 20150128
  Transmission Date: 20150721
  Serious: Yes (Death, Hospitalization)
  Sender: FDA-Public Use
  Company Number: 2008BI003425

PATIENT
  Age: 54 Year
  Sex: Female

DRUGS (1)
  1. AVONEX [Suspect]
     Active Substance: INTERFERON BETA-1A
     Indication: MULTIPLE SCLEROSIS
     Route: 030
     Dates: start: 20070608, end: 20080107

REACTIONS (4)
  - Pulmonary thrombosis [Fatal]
  - Urinary tract infection [Fatal]
  - Thrombosis [Fatal]
  - Aneurysm [Fatal]

NARRATIVE: CASE EVENT DATE: 20080130
